FAERS Safety Report 5370137-1 (Version None)
Quarter: 2007Q2

REPORT INFORMATION
  Report Type: 
  Country: None (occurrence: None)
  Receive Date: 20070613
  Receipt Date: 20070228
  Transmission Date: 20071010
  Serious: No
  Sender: FDA-Public Use
  Company Number: IND-AE-07-SAN-006

PATIENT
  Age: 69 Year
  Sex: Female

DRUGS (12)
  1. SANCTURA [Suspect]
     Indication: URGE INCONTINENCE
     Dosage: 1 TAB BID - PO
     Route: 048
     Dates: start: 20060701
  2. TRIAMTERENE AND HYDROCHLOROTHIAZIDE [Concomitant]
  3. TRAVATAN [Concomitant]
  4. NASONEX [Concomitant]
  5. CELEBREX [Concomitant]
  6. CIPRO [Concomitant]
  7. TYLENOL [Concomitant]
  8. FISH OIL [Concomitant]
  9. CITRACEL [Concomitant]
  10. GLUCOSAMINE CHONDROITIN [Concomitant]
  11. VITAMIN D [Concomitant]
  12. M.V.I. [Concomitant]

REACTIONS (1)
  - OEDEMA PERIPHERAL [None]
